FAERS Safety Report 15250358 (Version 1)
Quarter: 2018Q3

REPORT INFORMATION
  Report Type: Spontaneous
  Country: US (occurrence: US)
  Receive Date: 20180716
  Receipt Date: 20180716
  Transmission Date: 20181010
  Serious: No
  Sender: FDA-Public Use
  Company Number: None

PATIENT
  Age: 54 Year
  Sex: Female
  Weight: 72 kg

DRUGS (8)
  1. ESOMEPRAZOLE [Concomitant]
     Active Substance: ESOMEPRAZOLE
  2. MELOXICAN [Concomitant]
     Active Substance: MELOXICAM
  3. PANTOPRAZOLE 40 MG TABLET [Suspect]
     Active Substance: PANTOPRAZOLE
     Indication: GASTROOESOPHAGEAL REFLUX DISEASE
     Dosage: ?          QUANTITY:1 DF DOSAGE FORM;?
     Route: 048
     Dates: start: 20180615, end: 20180713
  4. CYCLOBENZAPRINE. [Concomitant]
     Active Substance: CYCLOBENZAPRINE
  5. LYRICA [Concomitant]
     Active Substance: PREGABALIN
  6. LIBRAX [Concomitant]
     Active Substance: CHLORDIAZEPOXIDE HYDROCHLORIDE\CLIDINIUM BROMIDE
  7. ZOLPIDEM [Concomitant]
     Active Substance: ZOLPIDEM\ZOLPIDEM TARTRATE
  8. CENTRUM SILVER WOMEN^S [Concomitant]

REACTIONS (4)
  - Gastrooesophageal reflux disease [None]
  - Nausea [None]
  - Abdominal pain upper [None]
  - Disease recurrence [None]

NARRATIVE: CASE EVENT DATE: 20180615
